FAERS Safety Report 9914957 (Version 1)
Quarter: 2014Q1

REPORT INFORMATION
  Report Type: Spontaneous
  Country: IT (occurrence: IT)
  Receive Date: 20140220
  Receipt Date: 20140220
  Transmission Date: 20141002
  Serious: Yes (Hospitalization)
  Sender: FDA-Public Use
  Company Number: PHHY2014IT018382

PATIENT
  Age: 85 Year
  Sex: Female

DRUGS (5)
  1. FUROSEMIDE [Suspect]
     Dates: start: 20130101, end: 20131222
  2. IGROSELES [Suspect]
     Dates: start: 20130101, end: 20131222
  3. DIBASE [Concomitant]
  4. KCL RETARD [Concomitant]
     Dosage: 600 MG, UNK
  5. PANTOPRAZOLE [Concomitant]

REACTIONS (1)
  - Renal failure [Recovering/Resolving]
